FAERS Safety Report 7842894-3 (Version None)
Quarter: 2011Q4

REPORT INFORMATION
  Report Type: 
  Country: None (occurrence: None)
  Receive Date: 20111025
  Receipt Date: 20111020
  Transmission Date: 20120403
  Serious: Yes (Other)
  Sender: FDA-Public Use
  Company Number: BR-PFIZER INC-2011253578

PATIENT
  Age: 69 Year
  Sex: Female

DRUGS (6)
  1. VARENICLINE TARTRATE [Suspect]
     Dosage: 2 TABLETS (UNKNOWN STRENGTH) DAILY
     Route: 048
     Dates: start: 20111001
  2. SYNTHROID [Concomitant]
     Indication: HORMONE THERAPY
     Dosage: UNK
     Dates: start: 20050401
  3. LEXOTAN [Concomitant]
     Indication: ANXIETY
     Dosage: UNK
  4. VARENICLINE TARTRATE [Suspect]
     Indication: TOBACCO USER
     Dosage: UNK
     Route: 048
     Dates: start: 20111008, end: 20111001
  5. ASPIRIN [Concomitant]
     Indication: THROMBOCYTOSIS
     Dosage: UNK (STRENGTH 325MG)
     Dates: start: 20101001
  6. RABEPRAZOLE SODIUM [Concomitant]
     Indication: REFLUX GASTRITIS
     Dosage: UNK
     Dates: start: 20110301

REACTIONS (7)
  - SOMNOLENCE [None]
  - DEPRESSION [None]
  - EATING DISORDER [None]
  - AFFECT LABILITY [None]
  - CRYING [None]
  - NAUSEA [None]
  - CONSTIPATION [None]
